FAERS Safety Report 20110659 (Version 1)
Quarter: 2021Q4

REPORT INFORMATION
  Report Type: Spontaneous
  Country: US (occurrence: None)
  Receive Date: 20211124
  Receipt Date: 20211124
  Transmission Date: 20220303
  Serious: Yes (Other)
  Sender: FDA-Public Use
  Company Number: None

PATIENT
  Age: 36 Year
  Sex: Male
  Weight: 111.6 kg

DRUGS (4)
  1. CASIRIVIMAB\IMDEVIMAB [Suspect]
     Active Substance: CASIRIVIMAB\IMDEVIMAB
     Indication: COVID-19
     Dosage: OTHER FREQUENCY : ONCE;?
     Route: 041
     Dates: start: 20211115, end: 20211115
  2. MELOXICAM [Concomitant]
     Active Substance: MELOXICAM
     Dates: start: 20210924
  3. TIZANIDINE [Concomitant]
     Active Substance: TIZANIDINE
     Dates: start: 20210924
  4. FLUTICASONE [Concomitant]
     Active Substance: FLUTICASONE
     Dates: start: 20150415

REACTIONS (3)
  - Chest pain [None]
  - Dyspnoea [None]
  - Heart rate increased [None]

NARRATIVE: CASE EVENT DATE: 20211120
